FAERS Safety Report 23724810 (Version 1)
Quarter: 2024Q2

REPORT INFORMATION
  Report Type: Spontaneous
  Country: RU (occurrence: RU)
  Receive Date: 20240409
  Receipt Date: 20240409
  Transmission Date: 20240716
  Serious: Yes (Other)
  Sender: FDA-Public Use
  Company Number: RU-PFIZER INC-PV202400044747

PATIENT
  Age: 65 Year
  Sex: Male

DRUGS (1)
  1. AVIBACTAM SODIUM\CEFTAZIDIME [Suspect]
     Active Substance: AVIBACTAM SODIUM\CEFTAZIDIME
     Indication: Pneumonia
     Dosage: UNK
     Route: 065
     Dates: start: 20240331, end: 20240401

REACTIONS (6)
  - Thrombocytopenia [Unknown]
  - Rash maculo-papular [Unknown]
  - Oedema peripheral [Unknown]
  - Purpura [Unknown]
  - Leukopenia [Unknown]
  - Anaemia [Unknown]

NARRATIVE: CASE EVENT DATE: 20240401
